FAERS Safety Report 9540824 (Version 4)
Quarter: 2018Q1

REPORT INFORMATION
  Report Type: Spontaneous
  Country: BR (occurrence: BR)
  Receive Date: 20130920
  Receipt Date: 20180308
  Transmission Date: 20180509
  Serious: Yes (Hospitalization, Other)
  Sender: FDA-Public Use
  Company Number: PHHY2013BR104918

PATIENT
  Age: 9 Year
  Sex: Male
  Weight: 60 kg

DRUGS (10)
  1. RITALIN LA [Suspect]
     Active Substance: METHYLPHENIDATE HYDROCHLORIDE
     Indication: ATTENTION DEFICIT/HYPERACTIVITY DISORDER
     Dosage: 1 DF, QD
     Route: 048
     Dates: start: 2006
  2. VITAMIN D [Concomitant]
     Active Substance: CHOLECALCIFEROL
     Indication: PRODUCT USED FOR UNKNOWN INDICATION
     Dosage: 1 DF, QD
     Route: 048
     Dates: start: 201712
  3. AMOXICILINA + ACIDO CLAVULONICO [Suspect]
     Active Substance: AMOXICILLIN\CLAVULANATE POTASSIUM
     Indication: OROPHARYNGEAL PAIN
     Dosage: 1 DF, BID
     Route: 065
  4. BACTROBAN [Suspect]
     Active Substance: MUPIROCIN\MUPIROCIN CALCIUM
     Indication: ANTIBIOTIC PROPHYLAXIS
     Dosage: 1 DF, QD (1 APPLICATION DAILY)
     Route: 065
     Dates: start: 20130813
  5. RISPERIDONA [Concomitant]
     Active Substance: RISPERIDONE
     Indication: PSYCHOMOTOR HYPERACTIVITY
     Dosage: 0.5 MG, UNK
     Route: 048
  6. NEBACETIN [Suspect]
     Active Substance: BACITRACIN
     Indication: SKIN ULCER
     Dosage: UNK UNK, QD
     Route: 061
  7. RISPERIDONA [Concomitant]
     Active Substance: RISPERIDONE
     Indication: IMPULSIVE BEHAVIOUR
  8. RITALIN LA [Suspect]
     Active Substance: METHYLPHENIDATE HYDROCHLORIDE
     Dosage: 2 DF, QD
     Route: 048
  9. CALCIUM [Concomitant]
     Active Substance: CALCIUM
     Indication: PRODUCT USED FOR UNKNOWN INDICATION
     Dosage: 1 DF, QD
     Route: 048
     Dates: start: 201712
  10. RITALIN LA [Suspect]
     Active Substance: METHYLPHENIDATE HYDROCHLORIDE
     Indication: OPPOSITIONAL DEFIANT DISORDER
     Dosage: 20 MG, UNK
     Route: 048

REACTIONS (27)
  - Calculus bladder [Recovered/Resolved]
  - Eating disorder [Not Recovered/Not Resolved]
  - Agitation [Recovered/Resolved]
  - Otorrhoea [Recovered/Resolved]
  - Mass [Recovered/Resolved]
  - Yellow fever [Unknown]
  - Adenoidal disorder [Unknown]
  - Pain [Unknown]
  - Impetigo [Not Recovered/Not Resolved]
  - Staphylococcal skin infection [Not Recovered/Not Resolved]
  - Delusion [Recovered/Resolved]
  - Spinal disorder [Unknown]
  - Blood urine present [Unknown]
  - Oropharyngeal pain [Not Recovered/Not Resolved]
  - Aggression [Recovered/Resolved]
  - Glomerulonephritis [Unknown]
  - Hypoacusis [Recovered/Resolved]
  - Nephrolithiasis [Recovered/Resolved]
  - Tachycardia [Unknown]
  - Skin ulcer [Not Recovered/Not Resolved]
  - Staphylococcal infection [Not Recovered/Not Resolved]
  - Renal impairment [Recovered/Resolved]
  - Protein urine [Unknown]
  - Deafness [Unknown]
  - Bone density decreased [Unknown]
  - Muscle spasms [Unknown]
  - Back pain [Recovering/Resolving]

NARRATIVE: CASE EVENT DATE: 201108
